FAERS Safety Report 17068377 (Version 1)
Quarter: 2019Q4

REPORT INFORMATION
  Report Type: Spontaneous
  Country: US (occurrence: US)
  Receive Date: 20191123
  Receipt Date: 20191123
  Transmission Date: 20200122
  Serious: No
  Sender: FDA-Public Use
  Company Number: US-BION-008278

PATIENT
  Sex: Female

DRUGS (1)
  1. VITMAIN D CAPSULE UNKNOWN (ERGOCALCIFEROL) [Suspect]
     Active Substance: ERGOCALCIFEROL
     Indication: PRODUCT USED FOR UNKNOWN INDICATION

REACTIONS (5)
  - Gastrointestinal pain [Unknown]
  - Nausea [Unknown]
  - Abdominal distension [Unknown]
  - Nightmare [Unknown]
  - Constipation [Unknown]
